FAERS Safety Report 4732082-1 (Version None)
Quarter: 2005Q3

REPORT INFORMATION
  Report Type: 
  Country: None (occurrence: None)
  Receive Date: 20050721
  Receipt Date: 20050407
  Transmission Date: 20060218
  Serious: No
  Sender: FDA-Public Use
  Company Number: 2005SP000113

PATIENT
  Age: 40 Year
  Sex: Female
  Weight: 49.8957 kg

DRUGS (3)
  1. LUNESTA [Suspect]
     Indication: INSOMNIA
     Dosage: 3 MG;HS;ORAL
     Route: 048
     Dates: start: 20050406
  2. PAIN MEDICATION [Concomitant]
  3. ALPRAZOLAM [Concomitant]

REACTIONS (7)
  - DRUG INEFFECTIVE [None]
  - FATIGUE [None]
  - HAEMATEMESIS [None]
  - HAEMATURIA [None]
  - HAEMOPTYSIS [None]
  - HEADACHE [None]
  - INSOMNIA [None]
